FAERS Safety Report 21932291 (Version 1)
Quarter: 2023Q1

REPORT INFORMATION
  Report Type: Spontaneous
  Country: US (occurrence: None)
  Receive Date: 20230131
  Receipt Date: 20230131
  Transmission Date: 20230418
  Serious: No
  Sender: FDA-Public Use
  Company Number: None

PATIENT
  Age: 29 Year
  Sex: Female
  Weight: 72 kg

DRUGS (3)
  1. ESCITALOPRAM [Suspect]
     Active Substance: ESCITALOPRAM OXALATE
     Indication: Depression
     Dosage: FREQUENCY : DAILY;?
     Route: 048
  2. ESCITALOPRAM [Suspect]
     Active Substance: ESCITALOPRAM OXALATE
     Indication: Anxiety
  3. LINZESS [Concomitant]
     Active Substance: LINACLOTIDE

REACTIONS (4)
  - Nightmare [None]
  - Sleep disorder [None]
  - Middle insomnia [None]
  - Hyperhidrosis [None]

NARRATIVE: CASE EVENT DATE: 20221101
